FAERS Safety Report 7420617-X (Version None)
Quarter: 2011Q2

REPORT INFORMATION
  Report Type: 
  Country: None (occurrence: None)
  Receive Date: 20110418
  Receipt Date: 20110414
  Transmission Date: 20111010
  Serious: Yes (Death, Hospitalization)
  Sender: FDA-Public Use
  Company Number: US-B.I. PHARMACEUTICALS,INC./RIDGEFIELD-2011-BP-07232BP

PATIENT
  Sex: Male

DRUGS (10)
  1. PRADAXA [Suspect]
     Indication: ANTICOAGULANT THERAPY
     Dosage: 150 MG
     Dates: start: 20110201
  2. NITROSTAT [Concomitant]
  3. FUROSEMIDE [Concomitant]
  4. EFFIENT [Concomitant]
  5. SOTATOL [Concomitant]
  6. METFORMIN [Concomitant]
  7. INSULIN [Concomitant]
  8. POTASSIUM [Concomitant]
  9. GLIPIZIDE [Concomitant]
  10. TEKTURNA [Concomitant]

REACTIONS (2)
  - DEATH [None]
  - LOSS OF CONSCIOUSNESS [None]
